FAERS Safety Report 20829319 (Version 2)
Quarter: 2022Q4

REPORT INFORMATION
  Report Type: Spontaneous
  Country: US (occurrence: US)
  Receive Date: 20220513
  Receipt Date: 20221128
  Transmission Date: 20230113
  Serious: No
  Sender: FDA-Public Use
  Company Number: US-PFIZER INC-202200452892

PATIENT
  Age: 27 Year
  Sex: Female

DRUGS (1)
  1. XELJANZ XR [Suspect]
     Active Substance: TOFACITINIB CITRATE
     Dosage: 11 MG, 1 PER DAY (ONCE DAILY)
     Route: 048
     Dates: start: 20210908

REACTIONS (1)
  - COVID-19 [Unknown]
